FAERS Safety Report 7759454-5 (Version None)
Quarter: 2011Q3

REPORT INFORMATION
  Report Type: 
  Country: None (occurrence: None)
  Receive Date: 20110919
  Receipt Date: 20110906
  Transmission Date: 20111222
  Serious: Yes (Hospitalization, Other)
  Sender: FDA-Public Use
  Company Number: US-AMGEN-USASP2011046248

PATIENT
  Age: 60 Year
  Sex: Female
  Weight: 45 kg

DRUGS (13)
  1. OMEPRAZOLE [Concomitant]
     Dosage: UNK
  2. LIDODERM [Concomitant]
     Dosage: UNK
  3. GLIPIZIDE [Concomitant]
     Dosage: UNK
  4. JANUVIA [Concomitant]
     Dosage: UNK
  5. BARACLUDE                          /03597801/ [Concomitant]
  6. PROCRIT [Suspect]
     Indication: INFLAMMATION
     Dosage: 10000 IU, Q2WK
     Route: 058
     Dates: end: 20110801
  7. PRANDIN                            /00882701/ [Concomitant]
     Dosage: UNK
  8. PROCRIT [Suspect]
     Indication: RENAL FAILURE CHRONIC
     Dosage: 40000 IU, UNK
     Route: 058
     Dates: start: 20110830
  9. MIRALAX [Concomitant]
     Dosage: UNK
  10. PROGRAF [Concomitant]
     Dosage: UNK
  11. VICODIN [Concomitant]
     Dosage: UNK
  12. HEPAGAM B [Concomitant]
     Dosage: UNK
  13. TYLENOL (CAPLET) [Concomitant]
     Dosage: UNK

REACTIONS (2)
  - HAEMOGLOBIN DECREASED [None]
  - IRON OVERLOAD [None]
